FAERS Safety Report 12348204 (Version 1)
Quarter: 2016Q2

REPORT INFORMATION
  Report Type: Spontaneous
  Country: DE (occurrence: DE)
  Receive Date: 20160509
  Receipt Date: 20160509
  Transmission Date: 20160815
  Serious: Yes (Hospitalization, Other)
  Sender: FDA-Public Use
  Company Number: DE-BRISTOL-MYERS SQUIBB COMPANY-BMS-2016-012187

PATIENT
  Age: 68 Year
  Sex: Male
  Weight: 120 kg

DRUGS (1)
  1. NIVOLUMAB [Suspect]
     Active Substance: NIVOLUMAB
     Indication: SQUAMOUS CELL CARCINOMA OF LUNG
     Dosage: 3 MG/KG, Q2WK
     Route: 065
     Dates: start: 201511, end: 201512

REACTIONS (2)
  - Herpes zoster [Recovering/Resolving]
  - Conjunctivitis [Not Recovered/Not Resolved]
